FAERS Safety Report 10253163 (Version 2)
Quarter: 2014Q2

REPORT INFORMATION
  Report Type: Report from Study
  Country: US (occurrence: US)
  Receive Date: 20140623
  Receipt Date: 20140626
  Transmission Date: 20141212
  Serious: Yes (Other)
  Sender: FDA-Public Use
  Company Number: US-GLAXOSMITHKLINE-B1006134A

PATIENT
  Age: 51 Year
  Sex: Female

DRUGS (7)
  1. TRAMETINIB [Suspect]
     Indication: METASTATIC MALIGNANT MELANOMA
     Dosage: 2MG PER DAY
     Route: 048
     Dates: start: 20140512
  2. MEDI4736 [Suspect]
     Indication: METASTATIC MALIGNANT MELANOMA
     Dosage: 10MGK EVERY TWO WEEKS
     Route: 042
     Dates: start: 20140512
  3. NEBIVOLOL [Concomitant]
     Indication: HYPERTENSION
     Dosage: 10MG AS REQUIRED
     Route: 048
     Dates: start: 2013
  4. CLEOCIN T [Concomitant]
     Indication: DERMATITIS ACNEIFORM
     Dosage: 1%DS TWICE PER DAY
     Route: 061
     Dates: start: 20140527
  5. MINOCYCLINE [Concomitant]
     Indication: DERMATITIS ACNEIFORM
     Dosage: 100MG TWICE PER DAY
     Route: 048
     Dates: start: 20140527, end: 20140607
  6. CYMBALTA [Concomitant]
     Indication: DEPRESSION
     Dosage: 60MG PER DAY
     Route: 048
     Dates: start: 20140430
  7. SYSTANE [Concomitant]
     Indication: LACRIMATION INCREASED
     Route: 047
     Dates: start: 20140527, end: 20140603

REACTIONS (1)
  - Choroidal effusion [Not Recovered/Not Resolved]
